FAERS Safety Report 4751668-1 (Version None)
Quarter: 2005Q3

REPORT INFORMATION
  Report Type: 
  Country: None (occurrence: None)
  Receive Date: 20050824
  Receipt Date: 20050817
  Transmission Date: 20060218
  Serious: Yes (Death)
  Sender: FDA-Public Use
  Company Number: PHNR2005AU01249

PATIENT
  Age: 46 Year
  Sex: Female

DRUGS (10)
  1. NEXIUM [Concomitant]
  2. COVERSYL [Concomitant]
  3. SLOW-K [Concomitant]
  4. MAGMIN [Concomitant]
  5. LASIX [Concomitant]
  6. MS CONTIN [Concomitant]
  7. CHOP [Concomitant]
  8. RITUXIMAB [Concomitant]
  9. GLEEVEC [Suspect]
     Dosage: 600 MG DAILY
     Route: 048
     Dates: start: 20040327, end: 20040328
  10. GLEEVEC [Suspect]
     Dosage: 400MG DAILY
     Dates: start: 20040328

REACTIONS (4)
  - ARRHYTHMIA [None]
  - CHEST PAIN [None]
  - HYPOTENSION [None]
  - SUDDEN DEATH [None]
